FAERS Safety Report 8198655 (Version 2)
Quarter: 2012Q4

REPORT INFORMATION
  Report Type: 
  Country: US (occurrence: US)
  Receive Date: 20111025
  Receipt Date: 20121207
  Transmission Date: 20130627
  Serious: Yes (Hospitalization)
  Sender: FDA-Public Use
  Company Number: US-ACTELION-A-US2011-55760

PATIENT
  Age: 73 Year
  Sex: Male

DRUGS (2)
  1. TRACLEER [Suspect]
     Indication: PULMONARY ARTERIAL HYPERTENSION
     Dosage: UNK
     Route: 048
     Dates: start: 201004
  2. COUMADIN [Concomitant]

REACTIONS (4)
  - Adverse reaction [Unknown]
  - Nasal congestion [Unknown]
  - Dyspnoea [Unknown]
  - Pulmonary congestion [Unknown]
